FAERS Safety Report 12281167 (Version 1)
Quarter: 2016Q2

REPORT INFORMATION
  Report Type: Spontaneous
  Country: US (occurrence: None)
  Receive Date: 20160418
  Receipt Date: 20160418
  Transmission Date: 20160815
  Serious: Yes (Hospitalization)
  Sender: FDA-Public Use
  Company Number: None

PATIENT
  Age: 85 Year
  Sex: Female
  Weight: 52.62 kg

DRUGS (2)
  1. TETRABENZINE, 25MG [Suspect]
     Active Substance: TETRABENAZINE
     Indication: HUNTINGTON^S DISEASE
     Dates: start: 20160301, end: 20160310
  2. TETRABENZINE, 25MG [Suspect]
     Active Substance: TETRABENAZINE
     Indication: CHOREA
     Dates: start: 20160301, end: 20160310

REACTIONS (3)
  - Dystonia [None]
  - Abnormal behaviour [None]
  - Product substitution issue [None]

NARRATIVE: CASE EVENT DATE: 20160310
